FAERS Safety Report 7105029-0 (Version None)
Quarter: 2010Q4

REPORT INFORMATION
  Report Type: 
  Country: None (occurrence: None)
  Receive Date: 20101116
  Receipt Date: 20091026
  Transmission Date: 20110411
  Serious: No
  Sender: FDA-Public Use
  Company Number: US-KINGPHARMUSA00001-K200901348

PATIENT
  Sex: Female
  Weight: 77.098 kg

DRUGS (9)
  1. EPIPEN [Suspect]
     Indication: FOOD ALLERGY
     Dosage: 0.3 MG, SINGLE
     Route: 030
     Dates: start: 20091019, end: 20091019
  2. ELMIRON [Concomitant]
     Dosage: UNK
  3. GABAPENTIN [Concomitant]
     Indication: FIBROMYALGIA
     Dosage: UNK
  4. ASPIRIN [Concomitant]
     Dosage: UNK
  5. NAMENDA [Concomitant]
     Indication: MEMORY IMPAIRMENT
     Dosage: UNK
  6. PREVACID [Concomitant]
     Indication: GASTROOESOPHAGEAL REFLUX DISEASE
     Dosage: UNK
  7. LISINOPRIL [Concomitant]
     Dosage: UNK
  8. DETROL [Concomitant]
     Dosage: UNK
  9. PIROXICAM [Concomitant]
     Dosage: UNK

REACTIONS (1)
  - DRUG INEFFECTIVE [None]
